FAERS Safety Report 8882059 (Version 2)
Quarter: 2013Q1

REPORT INFORMATION
  Report Type: Spontaneous
  Country: US (occurrence: US)
  Receive Date: 20121105
  Receipt Date: 20130115
  Transmission Date: 20140127
  Serious: No
  Sender: FDA-Public Use
  Company Number: US-009507513-1210USA013529

PATIENT
  Sex: Female
  Weight: 90.7 kg

DRUGS (6)
  1. NUVARING [Suspect]
     Indication: POLYMENORRHOEA
     Dosage: 1 RING FOR 3 WEEKS THEN 1 WEEK BREAK
     Route: 067
     Dates: start: 201209
  2. CYMBALTA [Concomitant]
     Dosage: UNK
  3. CELEBREX [Concomitant]
     Dosage: UNK
  4. PLAQUENIL [Concomitant]
     Dosage: UNK
  5. PROTONIX [Concomitant]
     Dosage: UNK
  6. MEDROL [Concomitant]
     Dosage: UNK

REACTIONS (6)
  - Sensory disturbance [Unknown]
  - Hyperhidrosis [Unknown]
  - Growth retardation [Unknown]
  - Pain [Unknown]
  - Palpitations [Unknown]
  - Vaginal discharge [Unknown]
